FAERS Safety Report 11128379 (Version 1)
Quarter: 2015Q2

REPORT INFORMATION
  Report Type: Spontaneous
  Country: US (occurrence: None)
  Receive Date: 20150520
  Receipt Date: 20150520
  Transmission Date: 20150821
  Serious: Yes (Life-Threatening, Hospitalization)
  Sender: FDA-Public Use
  Company Number: None

PATIENT
  Age: 55 Year
  Sex: Male
  Weight: 92.1 kg

DRUGS (1)
  1. SULFAMETHOXAZOLE/TRIMETHOPRIM [Suspect]
     Active Substance: SULFAMETHOXAZOLE\TRIMETHOPRIM
     Route: 048
     Dates: start: 20150421, end: 20150501

REACTIONS (7)
  - Lip swelling [None]
  - Dyspnoea [None]
  - Eye swelling [None]
  - Urticaria [None]
  - Pruritus [None]
  - Peripheral swelling [None]
  - Pharyngeal oedema [None]

NARRATIVE: CASE EVENT DATE: 20150501
